FAERS Safety Report 12195188 (Version 8)
Quarter: 2017Q3

REPORT INFORMATION
  Report Type: Spontaneous
  Country: US (occurrence: US)
  Receive Date: 20160321
  Receipt Date: 20170802
  Transmission Date: 20171127
  Serious: Yes (Hospitalization, Other)
  Sender: FDA-Public Use
  Company Number: US-PFIZER INC-2016159778

PATIENT
  Age: 65 Year
  Sex: Male

DRUGS (12)
  1. LYRICA [Suspect]
     Active Substance: PREGABALIN
     Indication: NEUROPATHY PERIPHERAL
     Dosage: 150 MG, 3X/DAY
     Dates: start: 2015
  2. LASIX [Concomitant]
     Active Substance: FUROSEMIDE
     Dosage: UNK
  3. NEURONTIN [Suspect]
     Active Substance: GABAPENTIN
     Dosage: 1800 MG, DAILY
  4. NEURONTIN [Suspect]
     Active Substance: GABAPENTIN
     Indication: NEUROPATHY PERIPHERAL
     Dosage: 900 MG, UNK
     Dates: start: 2003
  5. IBUPROFEN. [Suspect]
     Active Substance: IBUPROFEN
     Dosage: (6 TO 9-200 MG PILLS), DAILY
  6. LYRICA [Suspect]
     Active Substance: PREGABALIN
     Indication: METABOLIC DISORDER
     Dosage: 450 MG, DAILY
  7. FUROSEMIDE. [Concomitant]
     Active Substance: FUROSEMIDE
     Indication: OEDEMA
     Dosage: 80 MG, 2X/DAY
  8. AMITRIPTYLINE [Concomitant]
     Active Substance: AMITRIPTYLINE
     Indication: NEURALGIA
     Dosage: UNK (1 OR 2-10 MG PILLS AT BEDTIME)
  9. IBUPROFEN. [Suspect]
     Active Substance: IBUPROFEN
     Indication: NEUROPATHY PERIPHERAL
     Dosage: UNK
     Dates: start: 2003
  10. LISINOPRIL. [Suspect]
     Active Substance: LISINOPRIL
     Indication: HYPERTENSION
     Dosage: 40 MG, DAILY
     Dates: start: 2011
  11. ASPIRIN. [Concomitant]
     Active Substance: ASPIRIN
     Dosage: UNK
  12. NEURONTIN [Suspect]
     Active Substance: GABAPENTIN
     Dosage: 300 MG, 4X/DAY

REACTIONS (12)
  - Cardiac failure congestive [Not Recovered/Not Resolved]
  - Fall [Recovered/Resolved]
  - Weight increased [Unknown]
  - Peripheral venous disease [Recovering/Resolving]
  - Drug ineffective for unapproved indication [Not Recovered/Not Resolved]
  - Mobility decreased [Not Recovered/Not Resolved]
  - Drug effect incomplete [Not Recovered/Not Resolved]
  - Cardiac failure congestive [Not Recovered/Not Resolved]
  - Electric shock [Recovered/Resolved]
  - Condition aggravated [Not Recovered/Not Resolved]
  - Disease recurrence [Not Recovered/Not Resolved]
  - Muscular weakness [Recovered/Resolved]

NARRATIVE: CASE EVENT DATE: 200905
